FAERS Safety Report 4277555-3 (Version None)
Quarter: 2004Q1

REPORT INFORMATION
  Report Type: 
  Country: None (occurrence: None)
  Receive Date: 20040121
  Receipt Date: 20040121
  Transmission Date: 20041129
  Serious: Yes (Hospitalization)
  Sender: FDA-Public Use
  Company Number: None

PATIENT
  Sex: Female
  Weight: 83.9154 kg

DRUGS (7)
  1. LABETALOL 100 MG TABLETS; EON [Suspect]
     Indication: BLOOD PRESSURE
     Dosage: 100 MG PO BID
     Route: 048
     Dates: start: 20031215, end: 20040101
  2. LIPITOR [Concomitant]
  3. PREMARIN [Concomitant]
  4. NORVASC [Concomitant]
  5. LASIX [Concomitant]
  6. ZESTORETIC [Concomitant]
  7. MOTRIN [Concomitant]

REACTIONS (6)
  - ATRIAL FIBRILLATION [None]
  - BALANCE DISORDER [None]
  - DIZZINESS [None]
  - GAIT DISTURBANCE [None]
  - MUSCULAR WEAKNESS [None]
  - PHARMACEUTICAL PRODUCT COMPLAINT [None]
